FAERS Safety Report 4927578-3 (Version None)
Quarter: 2006Q1

REPORT INFORMATION
  Report Type: 
  Country: None (occurrence: None)
  Receive Date: 20060228
  Receipt Date: 20060216
  Transmission Date: 20060701
  Serious: Yes (Hospitalization, Other)
  Sender: FDA-Public Use
  Company Number: PHEH2006US02279

PATIENT
  Age: 65 Year
  Sex: Female
  Weight: 163 kg

DRUGS (16)
  1. AGRYLIN [Concomitant]
     Dosage: 0.5 MG, TIW
     Route: 048
     Dates: start: 20050829, end: 20051130
  2. AGRYLIN [Concomitant]
     Dosage: 1 MG, BID
     Route: 048
     Dates: start: 20050525
  3. CLONAZEPAM [Concomitant]
     Dosage: 2 MG, QHS
     Route: 048
     Dates: start: 20050815
  4. DEPAKOTE [Concomitant]
     Dosage: 250 MG, BID
     Route: 048
     Dates: start: 20050512
  5. GLEEVEC [Suspect]
     Indication: CHRONIC MYELOID LEUKAEMIA
     Dosage: 400 MG, BID
     Route: 048
     Dates: start: 20050630
  6. GLEEVEC [Suspect]
     Dosage: UNK MG, QD
     Route: 048
     Dates: start: 20030101
  7. POTASSIUM CHLORIDE [Concomitant]
     Dosage: 20 MEQ, QD
     Route: 048
     Dates: start: 20050614, end: 20051027
  8. POTASSIUM CHLORIDE [Concomitant]
     Dosage: 20 MEQ, QD
     Route: 048
     Dates: start: 20051214
  9. FOSAMAX ONCE WEEKLY [Concomitant]
     Dosage: 70 MG, QW
     Route: 048
     Dates: start: 20050614
  10. DARVOCET-N 50 [Concomitant]
     Dosage: 100 MG, Q6H PRN
     Route: 048
     Dates: start: 20050712
  11. MSIR [Concomitant]
     Dosage: 15 MG, BID
     Route: 048
     Dates: start: 20050714
  12. ADVAIR DISKUS 100/50 [Concomitant]
     Dosage: 1 DF, BID
     Dates: start: 20050827
  13. FLEXERIL [Concomitant]
     Dosage: 5 MG, BID
     Route: 048
     Dates: start: 20051027, end: 20051030
  14. FERROUS SULFATE TAB [Concomitant]
     Dosage: 325 MG, BID
     Route: 048
     Dates: start: 20050521, end: 20051231
  15. MAGNESIUM OXIDE [Concomitant]
     Dosage: 400 MG, QD
     Route: 048
     Dates: start: 20050504, end: 20050815
  16. MAGNESIUM OXIDE [Concomitant]
     Dosage: 400 MG, QD
     Route: 048
     Dates: start: 20051027

REACTIONS (7)
  - ASTHENIA [None]
  - MALIGNANT NEOPLASM PROGRESSION [None]
  - MEMORY IMPAIRMENT [None]
  - MIGRAINE WITHOUT AURA [None]
  - PLATELET COUNT DECREASED [None]
  - TREMOR [None]
  - UPPER RESPIRATORY TRACT INFECTION [None]
